FAERS Safety Report 21986121 (Version 6)
Quarter: 2025Q3

REPORT INFORMATION
  Report Type: Spontaneous
  Country: EU (occurrence: EU)
  Receive Date: 20230213
  Receipt Date: 20250718
  Transmission Date: 20251021
  Serious: Yes (Hospitalization, Other)
  Sender: MYLAN
  Company Number: None

PATIENT
  Age: 59 Year
  Sex: Male

DRUGS (6)
  1. EPIPEN [4]
     Active Substance: EPINEPHRINE
     Indication: Product used for unknown indication
  2. COMIRNATY (TOZINAMERAN) [Suspect]
     Active Substance: TOZINAMERAN
     Indication: COVID-19 immunisation
  3. COMIRNATY (TOZINAMERAN) [Suspect]
     Active Substance: TOZINAMERAN
  4. SOTALOL HYDROCHLORIDE [Concomitant]
     Active Substance: SOTALOL HYDROCHLORIDE
  5. XARELTO [Concomitant]
     Active Substance: RIVAROXABAN
     Indication: Anticoagulant therapy
     Dosage: 20 MG DAILY - ^REPORTED AS A MAX DOSE^
  6. ASPIRIN [Concomitant]
     Active Substance: ASPIRIN
     Indication: Anticoagulant therapy
     Dosage: 75 MG DAILY

REACTIONS (30)
  - Syncope [Not Recovered/Not Resolved]
  - Pleurisy [Recovered/Resolved]
  - Pain in extremity [Recovering/Resolving]
  - Limb discomfort [Recovering/Resolving]
  - Injection site pain [Recovering/Resolving]
  - Arthralgia [Recovered/Resolved]
  - Feeling cold [Recovered/Resolved]
  - Paraesthesia [Recovered/Resolved]
  - Disorientation [Recovered/Resolved]
  - Hypersomnia [Recovering/Resolving]
  - Hypoaesthesia [Recovering/Resolving]
  - Middle insomnia [Recovered/Resolved]
  - Feeling hot [Recovered/Resolved]
  - Musculoskeletal stiffness [Recovering/Resolving]
  - Muscular weakness [Recovering/Resolving]
  - Exercise tolerance decreased [Not Recovered/Not Resolved]
  - Apathy [Not Recovered/Not Resolved]
  - Haemorrhage [Unknown]
  - Cough [Not Recovered/Not Resolved]
  - Bone pain [Not Recovered/Not Resolved]
  - Arrhythmia [Recovered/Resolved]
  - Condition aggravated [Recovered/Resolved]
  - Palpitations [Recovering/Resolving]
  - Hyperhidrosis [Recovering/Resolving]
  - Fatigue [Not Recovered/Not Resolved]
  - Tissue injury [Not Recovered/Not Resolved]
  - Muscle fibrosis [Not Recovered/Not Resolved]
  - Hypertension [Recovered/Resolved]
  - Muscle spasms [Not Recovered/Not Resolved]
  - Pain [Not Recovered/Not Resolved]

NARRATIVE: CASE EVENT DATE: 20211210
